FAERS Safety Report 23188738 (Version 4)
Quarter: 2024Q1

REPORT INFORMATION
  Report Type: Spontaneous
  Country: US (occurrence: US)
  Receive Date: 20231115
  Receipt Date: 20240226
  Transmission Date: 20240409
  Serious: No
  Sender: FDA-Public Use
  Company Number: US-PFIZER INC-202300361731

PATIENT
  Age: 73 Year
  Sex: Female
  Weight: 52.154 kg

DRUGS (5)
  1. PAXLOVID [Suspect]
     Active Substance: NIRMATRELVIR\RITONAVIR
     Indication: COVID-19 treatment
     Dosage: [NIRMATRELVIR 300 MG]/[RITONAVIR 100 MG]; 2X/DAY
     Dates: start: 20231029, end: 20231102
  2. IMVEXXY [Concomitant]
     Active Substance: ESTRADIOL
     Dosage: UNK
     Dates: start: 2018
  3. NORTHSTAR RX [Concomitant]
     Dosage: TOLD TO STOP TAKING WHILE ON PAXLOVID. RESUMED TAKING ONE WEEK LATER
     Dates: start: 202209
  4. ESTROGENS [Concomitant]
     Active Substance: ESTROGENS
     Indication: Urinary tract infection
     Dosage: UNK
     Route: 067
     Dates: start: 2020
  5. ATORVASTATIN [Concomitant]
     Active Substance: ATORVASTATIN
     Indication: Blood cholesterol abnormal
     Dosage: UNK
     Route: 048
     Dates: start: 2022

REACTIONS (1)
  - Symptom recurrence [Recovered/Resolved]

NARRATIVE: CASE EVENT DATE: 20231107
